FAERS Safety Report 5576501-X (Version None)
Quarter: 2007Q4

REPORT INFORMATION
  Report Type: 
  Country: None (occurrence: None)
  Receive Date: 20071228
  Receipt Date: 20071228
  Transmission Date: 20080405
  Serious: Yes (Hospitalization)
  Sender: FDA-Public Use
  Company Number: A0700761A

PATIENT
  Age: 83 Year
  Sex: Male

DRUGS (12)
  1. ADVAIR DISKUS 100/50 [Suspect]
     Indication: CHRONIC OBSTRUCTIVE PULMONARY DISEASE
     Route: 055
     Dates: start: 20060601
  2. THEOPHYLLINE [Concomitant]
  3. ALBUTEROL [Concomitant]
  4. SPIRIVA [Concomitant]
  5. ALBUTEROL [Concomitant]
  6. NEXIUM [Concomitant]
  7. FLOMAX [Concomitant]
  8. VITAMIN [Concomitant]
  9. NITROGLYCERIN [Concomitant]
  10. MIRALAX [Concomitant]
  11. MUCINEX [Concomitant]
  12. STOOL SOFTENER [Concomitant]

REACTIONS (5)
  - AGEUSIA [None]
  - ANOREXIA [None]
  - DYSPNOEA [None]
  - PNEUMONIA [None]
  - WEIGHT DECREASED [None]
